FAERS Safety Report 10128546 (Version 1)
Quarter: 2014Q2

REPORT INFORMATION
  Report Type: Other
  Country: GB (occurrence: GB)
  Receive Date: 20140428
  Receipt Date: 20140428
  Transmission Date: 20141212
  Serious: Yes (Other)
  Sender: FDA-Public Use
  Company Number: GB-LUPIN PHARMACEUTICALS INC.-E2B_00001958

PATIENT
  Age: 73 Year
  Sex: Female

DRUGS (4)
  1. CEFTRIAXONE [Suspect]
     Indication: GOUTY TOPHUS
     Route: 065
     Dates: start: 20140320, end: 20140320
  2. CEFTRIAXONE [Suspect]
     Indication: GOUTY TOPHUS
     Route: 065
     Dates: start: 20140320, end: 20140320
  3. CALCICHEW D3 [Concomitant]
     Indication: PRODUCT USED FOR UNKNOWN INDICATION
     Route: 065
  4. ALENDRONIC ACID [Concomitant]
     Indication: PRODUCT USED FOR UNKNOWN INDICATION
     Route: 065

REACTIONS (2)
  - Dystonia [Recovered/Resolved]
  - Off label use [Recovered/Resolved]
